FAERS Safety Report 9798669 (Version 1)
Quarter: 2014Q1

REPORT INFORMATION
  Report Type: Spontaneous
  Country: US (occurrence: US)
  Receive Date: 20140106
  Receipt Date: 20140106
  Transmission Date: 20141002
  Serious: No
  Sender: FDA-Public Use
  Company Number: US-GILEAD-2010-0029633

PATIENT
  Sex: Male
  Weight: 123.38 kg

DRUGS (12)
  1. LETAIRIS [Suspect]
     Indication: PULMONARY ARTERIAL HYPERTENSION
     Route: 048
     Dates: start: 20100415
  2. HUMALOG [Concomitant]
  3. LASIX [Concomitant]
  4. AVAPRO [Concomitant]
  5. DIGOXIN [Concomitant]
  6. METOPROLOL [Concomitant]
  7. PLAVIX [Concomitant]
  8. COQ10 [Concomitant]
  9. WARFARIN [Concomitant]
  10. FOLIC ACID [Concomitant]
  11. SULAR [Concomitant]
  12. ASPIRIN [Concomitant]

REACTIONS (1)
  - Cellulitis [Unknown]
